FAERS Safety Report 8573990 (Version 3)
Quarter: 2013Q1

REPORT INFORMATION
  Report Type: Spontaneous
  Country: US (occurrence: US)
  Receive Date: 20120522
  Receipt Date: 20130129
  Transmission Date: 20140127
  Serious: Yes (Disabling, Other)
  Sender: FDA-Public Use
  Company Number: US-009507513-1205USA02891

PATIENT
  Sex: Female

DRUGS (3)
  1. FOSAMAX [Suspect]
     Indication: BONE LOSS
     Dosage: 70 MG, UNK
     Route: 048
     Dates: start: 200410, end: 2011
  2. LEVOTHYROXINE SODIUM [Concomitant]
     Indication: HYPOTHYROIDISM
     Dosage: UNK
     Dates: start: 1979
  3. ONE-A-DAY ESSENTIAL VITAMINS [Concomitant]
     Dosage: ONE TAB QD
     Dates: start: 2000

REACTIONS (20)
  - Internal fixation of fracture [Not Recovered/Not Resolved]
  - Osteoporosis [Not Recovered/Not Resolved]
  - Stress fracture [Not Recovered/Not Resolved]
  - Low turnover osteopathy [Not Recovered/Not Resolved]
  - Femur fracture [Not Recovered/Not Resolved]
  - Pernicious anaemia [Unknown]
  - Hypertension [Unknown]
  - Blood cholesterol increased [Unknown]
  - Anxiety [Unknown]
  - Hypertonic bladder [Unknown]
  - Infection [Unknown]
  - Insomnia [Unknown]
  - Cataract [Unknown]
  - Unevaluable event [Unknown]
  - Pain [None]
  - Mental disorder [None]
  - Emotional distress [None]
  - Depression [None]
  - Immobile [None]
  - Activities of daily living impaired [None]
